FAERS Safety Report 10512607 (Version 2)
Quarter: 2015Q1

REPORT INFORMATION
  Report Type: Spontaneous
  Country: JP (occurrence: JP)
  Receive Date: 20141011
  Receipt Date: 20150304
  Transmission Date: 20150720
  Serious: Yes (Other)
  Sender: FDA-Public Use
  Company Number: JP-009507513-1410JPN002789

PATIENT
  Age: 88 Year
  Sex: Female

DRUGS (2)
  1. THERAPY UNSPECIFIED [Suspect]
     Active Substance: UNSPECIFIED INGREDIENT
     Dosage: UNK
  2. ALENDRONATE SODIUM. [Suspect]
     Active Substance: ALENDRONATE SODIUM
     Dosage: DAILY DOSAGE UNKOWN
     Route: 048

REACTIONS (1)
  - Femur fracture [Unknown]
